FAERS Safety Report 8251436-2 (Version None)
Quarter: 2012Q1

REPORT INFORMATION
  Report Type: 
  Country: None (occurrence: None)
  Receive Date: 20120328
  Receipt Date: 20120321
  Transmission Date: 20120608
  Serious: Yes (Hospitalization, Other)
  Sender: FDA-Public Use
  Company Number: ADR-2012-00337

PATIENT
  Sex: Male

DRUGS (2)
  1. ADVIL AS NEEDED [Concomitant]
  2. LIORESAL [Suspect]
     Dosage: SEE IMAGE

REACTIONS (3)
  - POST PROCEDURAL INFECTION [None]
  - STAPHYLOCOCCUS TEST POSITIVE [None]
  - POSTOPERATIVE WOUND COMPLICATION [None]
